FAERS Safety Report 9262706 (Version 1)
Quarter: 2013Q2

REPORT INFORMATION
  Report Type: Spontaneous
  Country: US (occurrence: US)
  Receive Date: 20130430
  Receipt Date: 20130430
  Transmission Date: 20140414
  Serious: No
  Sender: FDA-Public Use
  Company Number: US-PFIZER INC-2013132230

PATIENT
  Age: 24 Month
  Sex: 0

DRUGS (1)
  1. ADVIL PM [Suspect]
     Dosage: UNK
     Dates: start: 20130425

REACTIONS (2)
  - Accidental exposure to product by child [Unknown]
  - Fatigue [Unknown]
